FAERS Safety Report 10891680 (Version 1)
Quarter: 2015Q1

REPORT INFORMATION
  Report Type: Spontaneous
  Country: CA (occurrence: CA)
  Receive Date: 20150306
  Receipt Date: 20150306
  Transmission Date: 20150721
  Serious: Yes (Other)
  Sender: FDA-Public Use
  Company Number: CA-TEVA-545773ACC

PATIENT
  Age: 15 Year
  Sex: Male
  Weight: 67 kg

DRUGS (2)
  1. METHYLPHENIDATE [Suspect]
     Active Substance: METHYLPHENIDATE
     Indication: ATTENTION DEFICIT/HYPERACTIVITY DISORDER
     Dosage: UNKNOWN FORM STRENGTH
     Route: 065
  2. METHYLPHENIDATE [Suspect]
     Active Substance: METHYLPHENIDATE
     Dosage: 1 DOSAGE FORMS DAILY;
     Route: 048

REACTIONS (3)
  - Product substitution issue [Recovered/Resolved]
  - Appetite disorder [Recovered/Resolved]
  - Abnormal behaviour [Recovered/Resolved]
